FAERS Safety Report 6711404-6 (Version None)
Quarter: 2010Q2

REPORT INFORMATION
  Report Type: 
  Country: None (occurrence: None)
  Receive Date: 20100505
  Receipt Date: 20100423
  Transmission Date: 20101027
  Serious: Yes (Other)
  Sender: FDA-Public Use
  Company Number: JP-PFIZER INC-2010044911

PATIENT
  Age: 89 Year
  Sex: Male

DRUGS (2)
  1. ZITHROMAC SR [Suspect]
     Indication: RESPIRATORY TRACT INFECTION
     Dosage: 2 G/DAY
     Route: 048
     Dates: start: 20100213, end: 20100318
  2. PL GRAN. [Suspect]
     Route: 048

REACTIONS (1)
  - INAPPROPRIATE ANTIDIURETIC HORMONE SECRETION [None]
